FAERS Safety Report 9770159 (Version 1)
Quarter: 2013Q4

REPORT INFORMATION
  Report Type: Spontaneous
  Country: BR (occurrence: BR)
  Receive Date: 20131218
  Receipt Date: 20131218
  Transmission Date: 20140711
  Serious: Yes (Hospitalization)
  Sender: FDA-Public Use
  Company Number: BR-ELI_LILLY_AND_COMPANY-BR201312002552

PATIENT
  Age: 84 Year
  Sex: Female
  Weight: 50 kg

DRUGS (7)
  1. FORTEO [Suspect]
     Indication: OSTEOPOROSIS
     Dosage: 20 UG, QD
     Route: 058
     Dates: start: 20131001
  2. DIOSMIN [Concomitant]
     Indication: PERIPHERAL VASCULAR DISORDER
     Dosage: UNK, UNKNOWN
     Route: 065
  3. ALOIS [Concomitant]
     Indication: DEMENTIA
     Dosage: UNK, UNKNOWN
     Route: 065
  4. RISPERIDONA [Concomitant]
     Indication: SLEEP DISORDER
     Dosage: UNK, UNKNOWN
     Route: 065
  5. CITALOPRAM [Concomitant]
     Indication: RELAXATION THERAPY
     Dosage: UNK, UNKNOWN
     Route: 065
  6. ALENIA [Concomitant]
     Indication: RESPIRATORY FAILURE
     Dosage: UNK, UNKNOWN
     Route: 065
  7. CALCIUM [Concomitant]
     Indication: PRODUCT USED FOR UNKNOWN INDICATION
     Dosage: UNK, UNKNOWN
     Route: 065

REACTIONS (3)
  - Capillary fragility abnormal [Unknown]
  - Skin haemorrhage [Unknown]
  - Coagulation test abnormal [Unknown]
